FAERS Safety Report 7929089-X (Version None)
Quarter: 2011Q4

REPORT INFORMATION
  Report Type: 
  Country: None (occurrence: None)
  Receive Date: 20111119
  Receipt Date: 20111115
  Transmission Date: 20120403
  Serious: Yes (Death)
  Sender: FDA-Public Use
  Company Number: AU-ASTRAZENECA-2011SE69002

PATIENT
  Age: 64 Year
  Sex: Male

DRUGS (2)
  1. FELYPRESSIN [Suspect]
     Indication: LOCAL ANAESTHESIA
     Route: 065
  2. PRILOCAINE HYDROCHLORIDE [Suspect]
     Indication: LOCAL ANAESTHESIA
     Route: 065

REACTIONS (1)
  - MYOCARDIAL INFARCTION [None]
